FAERS Safety Report 21861533 (Version 1)
Quarter: 2023Q1

REPORT INFORMATION
  Report Type: Spontaneous
  Country: US (occurrence: US)
  Receive Date: 20230113
  Receipt Date: 20230113
  Transmission Date: 20230418
  Serious: No
  Sender: FDA-Public Use
  Company Number: US-PFIZER INC-PV202300007342

PATIENT
  Age: 32 Year
  Sex: Female

DRUGS (1)
  1. ZIRABEV [Suspect]
     Active Substance: BEVACIZUMAB-BVZR
     Dosage: 400 MG

REACTIONS (1)
  - Nasopharyngitis [Unknown]
